FAERS Safety Report 9781676 (Version 1)
Quarter: 2013Q4

REPORT INFORMATION
  Report Type: Spontaneous
  Country: US (occurrence: US)
  Receive Date: 20131224
  Receipt Date: 20131224
  Transmission Date: 20140711
  Serious: Yes (Other)
  Sender: FDA-Public Use
  Company Number: US-BRISTOL-MYERS SQUIBB COMPANY-19919372

PATIENT
  Sex: Female

DRUGS (2)
  1. ABILIFY [Suspect]
     Indication: DEPRESSION
     Dosage: TITRATED UPTO ABILIFY 10MG
  2. PREMARIN [Interacting]

REACTIONS (4)
  - Suicidal ideation [Unknown]
  - Drug interaction [Unknown]
  - Confusional state [Unknown]
  - Feeling abnormal [Unknown]
